FAERS Safety Report 5244127-3 (Version None)
Quarter: 2007Q1

REPORT INFORMATION
  Report Type: 
  Country: None (occurrence: None)
  Receive Date: 20070222
  Receipt Date: 20070214
  Transmission Date: 20070707
  Serious: Yes (Life-Threatening)
  Sender: FDA-Public Use
  Company Number: GB-ROCHE-479508

PATIENT
  Age: 65 Year
  Sex: Female
  Weight: 63 kg

DRUGS (8)
  1. BONVIVA [Suspect]
     Indication: OSTEOPOROSIS
     Route: 048
     Dates: start: 20060728
  2. ASPIRIN [Concomitant]
     Route: 048
  3. RAMIPRIL [Concomitant]
     Route: 048
  4. SIMVASTATIN [Concomitant]
     Route: 048
  5. LANSOPRAZOLE [Concomitant]
     Route: 048
  6. IBUPROFEN [Concomitant]
  7. GAVISCON [Concomitant]
  8. CALCEOS [Concomitant]

REACTIONS (1)
  - ANAL CANCER [None]
